FAERS Safety Report 19597869 (Version 6)
Quarter: 2022Q1

REPORT INFORMATION
  Report Type: Report from Study
  Country: CA (occurrence: CA)
  Receive Date: 20210723
  Receipt Date: 20220329
  Transmission Date: 20220423
  Serious: Yes (Hospitalization, Other)
  Sender: FDA-Public Use
  Company Number: CA-JNJFOC-20210538721

PATIENT
  Age: 39 Year
  Sex: Female
  Weight: 73.094 kg

DRUGS (2)
  1. STELARA [Suspect]
     Active Substance: USTEKINUMAB
     Indication: Crohn^s disease
     Dosage: IV REINDUCTION FOLLOWED BY 90MG SUBCUTANEOUS Q8 WEEKS. STELARA REINDUCTION 28-JAN-2022
     Route: 058
  2. STELARA [Suspect]
     Active Substance: USTEKINUMAB
     Route: 058
     Dates: start: 20200729

REACTIONS (8)
  - Crohn^s disease [Not Recovered/Not Resolved]
  - Abscess intestinal [Unknown]
  - Intestinal stenosis [Unknown]
  - Gastrointestinal scarring [Unknown]
  - Gastrointestinal inflammation [Unknown]
  - Intestinal perforation [Recovered/Resolved]
  - Off label use [Unknown]
  - Product use issue [Unknown]

NARRATIVE: CASE EVENT DATE: 20200729
